FAERS Safety Report 7866437-3 (Version None)
Quarter: 2011Q4

REPORT INFORMATION
  Report Type: 
  Country: None (occurrence: None)
  Receive Date: 20111028
  Receipt Date: 20110616
  Transmission Date: 20120403
  Serious: No
  Sender: FDA-Public Use
  Company Number: US-GLAXOSMITHKLINE-A0931741A

PATIENT
  Age: 81 Year
  Sex: Female

DRUGS (3)
  1. ADVAIR DISKUS 100/50 [Suspect]
     Indication: BRONCHITIS
     Dosage: 1PUFF TWICE PER DAY
     Route: 055
     Dates: start: 20110606, end: 20110611
  2. VERAPAMIL [Concomitant]
  3. VITAMIN B COMPLEX CAP [Concomitant]

REACTIONS (4)
  - THROAT IRRITATION [None]
  - ADVERSE EVENT [None]
  - DYSPNOEA [None]
  - NON-CARDIAC CHEST PAIN [None]
